FAERS Safety Report 8538056-7 (Version None)
Quarter: 2012Q3

REPORT INFORMATION
  Report Type: 
  Country: None (occurrence: None)
  Receive Date: 20120725
  Receipt Date: 20120725
  Transmission Date: 20120928
  Serious: Yes (Hospitalization)
  Sender: FDA-Public Use
  Company Number: US-PFIZER INC-2012113569

PATIENT
  Age: 2 Year
  Sex: Male
  Weight: 12.5 kg

DRUGS (2)
  1. PF-02341066 [Suspect]
     Dosage: 4.5 ML, 2X/DAY, DOSE LEVEL 4: 215MG/M2/DOSE
     Dates: start: 20120413, end: 20120502
  2. PF-02341066 [Suspect]
     Indication: NEUROBLASTOMA
     Dosage: UNK
     Dates: start: 20110218

REACTIONS (2)
  - HERPES ZOSTER [None]
  - FEBRILE NEUTROPENIA [None]
